FAERS Safety Report 4444295-7 (Version None)
Quarter: 2004Q3

REPORT INFORMATION
  Report Type: 
  Country: None (occurrence: None)
  Receive Date: 20040813
  Receipt Date: 20031001
  Transmission Date: 20050211
  Serious: Yes (Other)
  Sender: FDA-Public Use
  Company Number: US-JNJFOC-20040703896

PATIENT
  Age: 2 Year
  Sex: Female

DRUGS (2)
  1. MOTRIN [Suspect]
     Indication: PYREXIA
     Dosage: ORAL
     Route: 048
     Dates: start: 20030801
  2. AMOXICILLIN [Concomitant]

REACTIONS (3)
  - PHOTOSENSITIVITY REACTION [None]
  - STEVENS-JOHNSON SYNDROME [None]
  - SUSPICIOUSNESS [None]
